FAERS Safety Report 8341531-1 (Version None)
Quarter: 2012Q2

REPORT INFORMATION
  Report Type: 
  Country: None (occurrence: None)
  Receive Date: 20120507
  Receipt Date: 20120427
  Transmission Date: 20120825
  Serious: Yes (Hospitalization)
  Sender: FDA-Public Use
  Company Number: NL-MEDIMMUNE-MEDI-0015332

PATIENT
  Sex: Female
  Weight: 7.12 kg

DRUGS (2)
  1. SYNAGIS [Suspect]
     Indication: PREMATURE BABY
     Route: 030
     Dates: start: 20110906, end: 20120223
  2. SYNAGIS [Suspect]
     Route: 030
     Dates: start: 20120322, end: 20120322

REACTIONS (4)
  - DYSPNOEA [None]
  - RHINORRHOEA [None]
  - HYPOPHAGIA [None]
  - PYREXIA [None]
